FAERS Safety Report 8004478-6 (Version None)
Quarter: 2011Q4

REPORT INFORMATION
  Report Type: 
  Country: None (occurrence: None)
  Receive Date: 20111223
  Receipt Date: 20111205
  Transmission Date: 20120403
  Serious: Yes (Other)
  Sender: FDA-Public Use
  Company Number: US-JNJCP-30000081127

PATIENT
  Sex: Female
  Weight: 86 kg

DRUGS (1)
  1. NTG HEALTHY SKIN FACE LOTION SPF15 2.5OZ USA 070501062302 [Suspect]
     Indication: DRY SKIN
     Dosage: A DIME SIZE AMOUNT, ONCE
     Route: 061
     Dates: start: 20111202, end: 20111203

REACTIONS (3)
  - DYSPNOEA [None]
  - APPLICATION SITE PAIN [None]
  - ANGIOEDEMA [None]
